FAERS Safety Report 14299150 (Version 2)
Quarter: 2018Q1

REPORT INFORMATION
  Report Type: Spontaneous
  Country: JP (occurrence: JP)
  Receive Date: 20171218
  Receipt Date: 20180105
  Transmission Date: 20180509
  Serious: Yes (Other)
  Sender: FDA-Public Use
  Company Number: JP-UCBSA-2017050282

PATIENT
  Age: 90 Year
  Sex: Female
  Weight: 36 kg

DRUGS (2)
  1. E KEPPRA [Suspect]
     Active Substance: LEVETIRACETAM
     Indication: EPILEPSY
     Dosage: 1000 MG DAILY DOSE
     Route: 048
  2. E KEPPRA [Suspect]
     Active Substance: LEVETIRACETAM
     Dosage: 3000 MG DAILY DOSE
     Route: 048

REACTIONS (5)
  - Tremor [Unknown]
  - Fall [Unknown]
  - Epilepsy [Unknown]
  - Contusion [Unknown]
  - Drug ineffective [Unknown]

NARRATIVE: CASE EVENT DATE: 201711
